FAERS Safety Report 14834638 (Version 1)
Quarter: 2018Q2

REPORT INFORMATION
  Report Type: Spontaneous
  Country: US (occurrence: US)
  Receive Date: 20180501
  Receipt Date: 20180501
  Transmission Date: 20180711
  Serious: Yes (Death, Other)
  Sender: FDA-Public Use
  Company Number: PHHY2018US070663

PATIENT
  Age: 54 Year
  Sex: Male

DRUGS (3)
  1. PACLITAXEL. [Suspect]
     Active Substance: PACLITAXEL
     Indication: SQUAMOUS CELL CARCINOMA OF THE TONGUE
     Route: 065
  2. 5-FLUOROURACIL [Suspect]
     Active Substance: FLUOROURACIL
     Indication: SQUAMOUS CELL CARCINOMA OF THE TONGUE
     Route: 065
  3. HYDROXYUREA. [Suspect]
     Active Substance: HYDROXYUREA
     Indication: SQUAMOUS CELL CARCINOMA OF THE TONGUE
     Route: 065

REACTIONS (12)
  - Haemodynamic instability [Fatal]
  - Stenotrophomonas test positive [Fatal]
  - Diarrhoea [Unknown]
  - Bone marrow failure [Fatal]
  - Acute kidney injury [Fatal]
  - Toxic epidermal necrolysis [Fatal]
  - Renal tubular necrosis [Fatal]
  - Gastrointestinal tract mucosal discolouration [Fatal]
  - Skin exfoliation [Fatal]
  - Sepsis [Fatal]
  - Pancytopenia [Unknown]
  - Gastrointestinal mucosal disorder [Fatal]
